FAERS Safety Report 12201628 (Version 1)
Quarter: 2016Q1

REPORT INFORMATION
  Report Type: Spontaneous
  Country: US (occurrence: US)
  Receive Date: 20160322
  Receipt Date: 20160322
  Transmission Date: 20160526
  Serious: No
  Sender: FDA-Public Use
  Company Number: US-SA-2015SA131243

PATIENT
  Sex: Male

DRUGS (1)
  1. NASACORT ALLERGY 24HR [Suspect]
     Active Substance: TRIAMCINOLONE ACETONIDE
     Dosage: START DATE: 1 WEEK BACK
     Route: 065

REACTIONS (6)
  - Dysgeusia [Unknown]
  - Nausea [Unknown]
  - Drug ineffective [Unknown]
  - Retching [Unknown]
  - Dyspnoea [Unknown]
  - Headache [Unknown]
